FAERS Safety Report 5743054-2 (Version None)
Quarter: 2008Q2

REPORT INFORMATION
  Report Type: 
  Country: None (occurrence: None)
  Receive Date: 20080519
  Receipt Date: 20080508
  Transmission Date: 20081010
  Serious: Yes (Life-Threatening, Other)
  Sender: FDA-Public Use
  Company Number: JP-GILEAD-2008-0016255

PATIENT
  Sex: Female
  Weight: 19.7 kg

DRUGS (68)
  1. AMBISOME [Suspect]
     Indication: SYSTEMIC MYCOSIS
     Route: 041
     Dates: start: 20080423, end: 20080425
  2. AMBISOME [Suspect]
     Indication: PYELONEPHRITIS FUNGAL
     Route: 041
     Dates: start: 20080409, end: 20080422
  3. CIDOFOVIR [Suspect]
     Dates: start: 20080423
  4. NEUTROGIN [Suspect]
     Indication: NEUTROPENIA
     Route: 041
     Dates: start: 20080427
  5. NEUTROGIN [Suspect]
     Route: 042
     Dates: start: 20080415, end: 20080416
  6. TARGOCID [Suspect]
     Indication: INFECTION
     Route: 041
     Dates: start: 20080421, end: 20080425
  7. VFEND [Concomitant]
     Dates: start: 20080407
  8. POTASSIUM CHLORIDE [Concomitant]
     Indication: HYPOKALAEMIA
  9. SOLU-MEDROL [Concomitant]
     Indication: PROPHYLAXIS AGAINST GRAFT VERSUS HOST DISEASE
     Route: 042
  10. FOSCAVIR [Concomitant]
     Indication: CYTOMEGALOVIRUS INFECTION
     Route: 041
     Dates: start: 20080415, end: 20080422
  11. PROGRAF [Concomitant]
     Indication: PROPHYLAXIS AGAINST GRAFT VERSUS HOST DISEASE
     Route: 041
     Dates: end: 20080427
  12. ALPROSTADIL [Concomitant]
     Indication: HEPATIC VEIN OCCLUSION
     Route: 041
  13. ALPROSTADIL [Concomitant]
     Indication: PROPHYLAXIS
  14. PERDIPINE [Concomitant]
     Indication: HYPERTENSION
     Route: 041
     Dates: start: 20080427
  15. PERDIPINE [Concomitant]
     Route: 041
     Dates: end: 20080426
  16. OMEPRAZOLE [Concomitant]
     Indication: GASTRITIS PROPHYLAXIS
     Route: 042
  17. MORPHINE HYDROCLORIDE [Concomitant]
     Indication: PAIN
     Route: 042
  18. INOVAN [Concomitant]
     Indication: DIURETIC THERAPY
     Route: 041
     Dates: start: 20080423, end: 20080426
  19. INOVAN [Concomitant]
     Route: 041
     Dates: end: 20080422
  20. FIRSTCIN [Concomitant]
     Indication: INFECTION
     Route: 042
     Dates: start: 20080424
  21. FIRSTCIN [Concomitant]
     Route: 042
     Dates: end: 20080417
  22. FULCALIQ 2 [Concomitant]
     Indication: FLUID REPLACEMENT
     Route: 041
     Dates: end: 20080425
  23. ELEMENMIC [Concomitant]
     Indication: MINERAL SUPPLEMENTATION
     Route: 041
     Dates: end: 20080425
  24. NOVO HEPARIN [Concomitant]
     Indication: ANTICOAGULANT THERAPY
     Route: 041
     Dates: end: 20080425
  25. SODIUM CHLORIDE [Concomitant]
     Indication: HYPONATRAEMIA
     Route: 042
     Dates: end: 20080425
  26. URSO 250 [Concomitant]
     Indication: PROPHYLAXIS
     Route: 048
     Dates: end: 20080425
  27. URSO 250 [Concomitant]
     Indication: HEPATIC FUNCTION ABNORMAL
  28. BAKTAR [Concomitant]
     Indication: INFECTION PROPHYLAXIS
     Route: 048
     Dates: end: 20080425
  29. AMOBAN [Concomitant]
     Indication: INSOMNIA
     Route: 048
     Dates: end: 20080426
  30. ALBUMIN (HUMAN) [Concomitant]
     Indication: HYPOALBUMINAEMIA
     Route: 042
     Dates: start: 20080424, end: 20080424
  31. ALBUMIN (HUMAN) [Concomitant]
     Route: 042
     Dates: start: 20080421, end: 20080421
  32. ALBUMIN (HUMAN) [Concomitant]
     Route: 042
     Dates: start: 20080416, end: 20080416
  33. ALBUMIN (HUMAN) [Concomitant]
     Route: 042
     Dates: start: 20080410, end: 20080413
  34. ATARAX [Concomitant]
     Indication: VOMITING
     Route: 042
     Dates: start: 20080423, end: 20080424
  35. ATARAX [Concomitant]
     Indication: INSOMNIA
     Route: 042
     Dates: start: 20080420, end: 20080420
  36. ATARAX [Concomitant]
     Route: 042
     Dates: start: 20080416, end: 20080418
  37. ATARAX [Concomitant]
     Route: 042
     Dates: start: 20080411, end: 20080412
  38. KENKETSU VENOGLOBULIN-IH [Concomitant]
     Indication: THROMBOCYTOPENIA
     Route: 042
     Dates: start: 20080425, end: 20080425
  39. KENKETSU VENOGLOBULIN-IH [Concomitant]
     Route: 042
     Dates: start: 20080418, end: 20080418
  40. KENKETSU VENOGLOBULIN-IH [Concomitant]
     Route: 042
     Dates: start: 20080411, end: 20080411
  41. STERICLON W [Concomitant]
     Indication: PROPHYLAXIS URINARY TRACT INFECTION
     Dates: start: 20080414, end: 20080414
  42. NEUART [Concomitant]
     Indication: ANTICOAGULANT THERAPY
     Route: 042
     Dates: start: 20080414, end: 20080414
  43. ATROPINE SULFATE [Concomitant]
     Indication: URETERAL STENT INSERTION
     Route: 042
     Dates: start: 20080415, end: 20080415
  44. ATROPINE SULFATE [Concomitant]
     Indication: URETERAL STENT REMOVAL
  45. MIDAZOLAM HCL [Concomitant]
     Indication: URETERAL STENT INSERTION
     Route: 042
     Dates: start: 20080415, end: 20080415
  46. MIDAZOLAM HCL [Concomitant]
     Indication: URETERAL STENT REMOVAL
  47. KETALAR [Concomitant]
     Indication: URETERAL STENT INSERTION
     Route: 042
     Dates: start: 20080415, end: 20080415
  48. KETALAR [Concomitant]
     Indication: URETERAL STENT REMOVAL
  49. NEGMIN [Concomitant]
     Indication: URETERAL STENT INSERTION
     Dates: start: 20080422
  50. NEGMIN [Concomitant]
     Indication: URETERAL STENT REMOVAL
     Route: 042
     Dates: start: 20080415, end: 20080415
  51. NEGMIN [Concomitant]
     Indication: INFECTION PROPHYLAXIS
  52. HYPOETHANOL [Concomitant]
     Indication: URETERAL STENT INSERTION
     Dates: start: 20080415, end: 20080415
  53. HYPOETHANOL [Concomitant]
     Indication: URETERAL STENT REMOVAL
  54. CARBENIN [Concomitant]
     Indication: INFECTION
     Route: 041
     Dates: start: 20080417, end: 20080423
  55. LASIX [Concomitant]
     Indication: DIURETIC THERAPY
     Route: 042
     Dates: start: 20080424, end: 20080424
  56. LASIX [Concomitant]
     Route: 042
     Dates: start: 20080421, end: 20080421
  57. LASIX [Concomitant]
     Route: 042
     Dates: start: 20080418, end: 20080418
  58. LASIX [Concomitant]
     Route: 042
     Dates: start: 20080417, end: 20080417
  59. ARTIFICIAL TEAR MYTEAR [Concomitant]
     Indication: CONJUNCTIVITIS
     Dates: start: 20080419
  60. DEPAKENE [Concomitant]
     Indication: EPILEPSY
     Route: 048
     Dates: start: 20080422, end: 20080425
  61. DEPAKENE [Concomitant]
     Indication: PROPHYLAXIS
  62. BENECID [Concomitant]
     Indication: RENAL IMPAIRMENT
     Route: 048
     Dates: start: 20080423, end: 20080425
  63. WHITE PETROLATUM [Concomitant]
     Indication: PRURITUS GENITAL
     Dates: start: 20080423
  64. SOLDACTONE [Concomitant]
     Route: 042
     Dates: start: 20080424, end: 20080425
  65. ISOTONIC SODIUM CHLORIDE SOLUTION [Concomitant]
     Dates: end: 20080424
  66. SOLITA-T [Concomitant]
     Dates: start: 20080424
  67. OXYGEN [Concomitant]
     Route: 055
     Dates: start: 20080425
  68. DOBUTAMINE HYDROCHLORIDE [Concomitant]
     Dates: start: 20080425

REACTIONS (4)
  - BLOOD POTASSIUM DECREASED [None]
  - PLATELET COUNT DECREASED [None]
  - RENAL FAILURE [None]
  - RESPIRATORY FAILURE [None]
